FAERS Safety Report 20111022 (Version 13)
Quarter: 2022Q2

REPORT INFORMATION
  Report Type: Spontaneous
  Country: DE (occurrence: DE)
  Receive Date: 20211125
  Receipt Date: 20220404
  Transmission Date: 20220720
  Serious: Yes (Hospitalization, Other)
  Sender: FDA-Public Use
  Company Number: DE-002147023-NVSC2021DE222834

PATIENT
  Age: 74 Year
  Sex: Male

DRUGS (51)
  1. CARVEDILOL [Suspect]
     Active Substance: CARVEDILOL
     Indication: Blood pressure management
     Dosage: 25 MILLIGRAM, ONCE A DAY
     Route: 065
  2. CANDESARTAN [Suspect]
     Active Substance: CANDESARTAN
     Indication: Blood pressure abnormal
     Dosage: 32 MILLIGRAM, ONCE A DAY(32 MG, QD)
     Route: 065
     Dates: start: 202102
  3. CANDESARTAN [Suspect]
     Active Substance: CANDESARTAN
     Dosage: 32 MILLIGRAM, ONCE A DAY(32 MG, QD)
     Route: 065
     Dates: start: 20210226
  4. DOXAZOSIN [Suspect]
     Active Substance: DOXAZOSIN MESYLATE
     Indication: Blood pressure measurement
     Dosage: 16 MILLIGRAM, ONCE A DAY (8 MG, BID (RETARD)SUSTAINED RELEASE )
     Route: 065
  5. DOXAZOSIN [Suspect]
     Active Substance: DOXAZOSIN MESYLATE
     Dosage: 2 DOSAGE FORM, ONCE A DAY (8 MG)
     Route: 065
  6. DOXAZOSIN [Suspect]
     Active Substance: DOXAZOSIN MESYLATE
     Dosage: 8 MILLIGRAM ((2 AND 1/2) )
     Route: 065
  7. DOXAZOSIN [Suspect]
     Active Substance: DOXAZOSIN MESYLATE
     Dosage: 4 MILLIGRAM (?-2-2-0)
     Route: 065
  8. DOXAZOSIN [Suspect]
     Active Substance: DOXAZOSIN MESYLATE
     Dosage: 16 MILLIGRAM, ONCE A DAY, (8 MG, BID, (0-2-0-0) )
     Route: 065
  9. DOXAZOSIN [Suspect]
     Active Substance: DOXAZOSIN MESYLATE
     Dosage: 16 MILLIGRAM
     Route: 065
  10. DOXAZOSIN [Suspect]
     Active Substance: DOXAZOSIN MESYLATE
     Dosage: 16 MILLIGRAM, ONCE A DAY, 16 MILLIGRAM, ONCE A DAY, (8 MG, BID, (8 MG, BID, (0-1-0-1) )
     Route: 065
  11. DOXAZOSIN [Suspect]
     Active Substance: DOXAZOSIN MESYLATE
     Dosage: 8 MILLIGRAM, TWO TIMES A DAY, ?(8 MG, TWICE DAILY (RETARD) SUSTAINED RELEASE )
     Route: 065
  12. FLUVASTATIN [Suspect]
     Active Substance: FLUVASTATIN SODIUM
     Indication: Blood cholesterol
     Dosage: UNK
     Route: 065
  13. PANTOPRAZOLE [Suspect]
     Active Substance: PANTOPRAZOLE
     Indication: Abdominal discomfort
     Dosage: 20 MILLIGRAM, ONCE A DAY
     Route: 065
  14. TAMSULOSIN [Suspect]
     Active Substance: TAMSULOSIN
     Indication: Prostate infection
     Dosage: 0.4 MILLIGRAM, ONCE A DAY
     Route: 065
  15. VALGANCICLOVIR [Suspect]
     Active Substance: VALGANCICLOVIR
     Indication: Product used for unknown indication
     Dosage: 450 MILLIGRAM, ONCE A DAY
     Route: 065
     Dates: start: 20140801, end: 20140801
  16. AMPHOTERICIN B [Suspect]
     Active Substance: AMPHOTERICIN B
     Indication: Product used for unknown indication
     Dosage: 3 DOSAGE FORM, ONCE A DAY (1 DF, TID )
     Route: 065
     Dates: end: 20140729
  17. AMPHOTERICIN B [Suspect]
     Active Substance: AMPHOTERICIN B
     Dosage: 1 DOSAGE FORM
     Route: 065
  18. ARANESP [Suspect]
     Active Substance: DARBEPOETIN ALFA
     Indication: Product used for unknown indication
     Dosage: 10 MILLIGRAM, EVERY WEEK
     Route: 065
     Dates: end: 20141210
  19. CANDESARTAN CILEXETIL [Suspect]
     Active Substance: CANDESARTAN CILEXETIL
     Indication: Blood pressure measurement
     Dosage: 32 MILLIGRAM, ONCE A DAY
     Route: 065
     Dates: start: 20210226
  20. SODIUM BICARBONATE [Suspect]
     Active Substance: SODIUM BICARBONATE
     Indication: Product used for unknown indication
     Dosage: 1 GRAM, ONCE A DAY
     Route: 065
  21. CHOLECALCIFEROL [Suspect]
     Active Substance: CHOLECALCIFEROL
     Indication: Product used for unknown indication
     Dosage: UNK
     Route: 065
  22. COTRIMOXAZOLE [Suspect]
     Active Substance: SULFAMETHOXAZOLE\TRIMETHOPRIM
     Indication: Product used for unknown indication
     Dosage: 480 MILLIGRAM
     Route: 065
     Dates: start: 20140401
  23. CHOLECALCIFEROL [Suspect]
     Active Substance: CHOLECALCIFEROL
     Indication: Product used for unknown indication
     Dosage: UNK
     Route: 065
  24. DIGITOXIN [Suspect]
     Active Substance: DIGITOXIN
     Indication: Cardiac disorder
     Dosage: 1 DOSAGE FORM, ONCE A DAY (NOT ON SUNDAYS)
     Route: 065
  25. FERROUS GLYCINE SULFATE [Suspect]
     Active Substance: FERROUS GLYCINE SULFATE
     Indication: Product used for unknown indication
     Dosage: 100 MILLIGRAM, ONCE A DAY
     Route: 065
     Dates: end: 20150610
  26. FUROSEMIDE [Suspect]
     Active Substance: FUROSEMIDE
     Indication: Fluid retention
     Dosage: 40 MILLIGRAM (AS NECESSARY)
     Route: 065
  27. HYGROTON [Suspect]
     Active Substance: CHLORTHALIDONE
     Indication: Blood pressure measurement
     Dosage: 0.5 DOSAGE FORM, ONCE A DAY
     Route: 065
  28. CALCIUM CARBONATE\CHOLECALCIFEROL [Suspect]
     Active Substance: CALCIUM CARBONATE\CHOLECALCIFEROL
     Indication: Product used for unknown indication
     Dosage: 2 DOSAGE FORM, ONCE A DAY (1 DF, BID)
     Route: 065
     Dates: start: 20170729
  29. CALCIUM CARBONATE\CHOLECALCIFEROL [Suspect]
     Active Substance: CALCIUM CARBONATE\CHOLECALCIFEROL
     Dosage: 1 DOSAGE FORM
     Route: 065
  30. MINOXIDIL [Suspect]
     Active Substance: MINOXIDIL
     Indication: Blood pressure management
     Dosage: UNK, ONCE A DAY (2.5, TID (1-1-1) )
     Route: 065
  31. MARCUMAR [Suspect]
     Active Substance: PHENPROCOUMON
     Indication: Cardiac disorder
     Dosage: 0.5 DOSAGE FORM
     Route: 065
  32. MARCUMAR [Suspect]
     Active Substance: PHENPROCOUMON
     Indication: Anticoagulant therapy
     Dosage: UNK, (0-0-?-0 -1)
     Route: 048
  33. MYFORTIC [Suspect]
     Active Substance: MYCOPHENOLATE SODIUM
     Indication: Transplant
     Dosage: 2 DOSAGE FORM, ONCE A DAY (1 DF,BID)
     Route: 065
  34. MYFORTIC [Suspect]
     Active Substance: MYCOPHENOLATE SODIUM
     Dosage: 1 DOSAGE FORM, TWO TIMES A DAY
     Route: 065
  35. NITRENDIPINE [Suspect]
     Active Substance: NITRENDIPINE
     Indication: Blood pressure measurement
     Dosage: 20 MILLIGRAM, ONCE A DAY (10 MG, BID)
     Route: 065
  36. NITRENDIPINE [Suspect]
     Active Substance: NITRENDIPINE
     Indication: Blood pressure abnormal
     Dosage: 40 MILLIGRAM, ONCE A DAY (20 MG BID)
     Route: 065
  37. NITRENDIPINE [Suspect]
     Active Substance: NITRENDIPINE
     Dosage: 2 DOSAGE FORM, ONCE A DAY (20 MG)
     Route: 065
  38. NITRENDIPINE [Suspect]
     Active Substance: NITRENDIPINE
     Dosage: 20 MILLIGRAM,  (IN THE MORNING AFTER ABOUT 1 TO 2 HOURS)
     Route: 065
  39. NITRENDIPINE [Suspect]
     Active Substance: NITRENDIPINE
     Dosage: 10 MILLIGRAM
     Route: 065
  40. PROGRAF [Suspect]
     Active Substance: TACROLIMUS
     Indication: Transplant
     Dosage: 1 MILLIGRAM, ONCE A DAY
     Route: 065
     Dates: end: 2018
  41. PROGRAF [Suspect]
     Active Substance: TACROLIMUS
     Indication: Prostate infection
     Dosage: 1 MILLIGRAM, TWO TIMES A DAY
     Route: 065
  42. PROGRAF [Suspect]
     Active Substance: TACROLIMUS
     Dosage: 0.5 MILLIGRAM, TWO TIMES A DAY
     Route: 065
  43. PROGRAF [Suspect]
     Active Substance: TACROLIMUS
     Dosage: 0.4 MILLIGRAM, ONCE A DAY
     Route: 065
  44. SODIUM BICARBONATE [Suspect]
     Active Substance: SODIUM BICARBONATE
     Indication: Product used for unknown indication
     Dosage: 1 GRAM, ONCE A DAY
     Route: 065
  45. SODIUM BICARBONATE [Suspect]
     Active Substance: SODIUM BICARBONATE
     Dosage: UNK
     Route: 065
  46. TACROLIMUS [Suspect]
     Active Substance: TACROLIMUS
     Indication: Transplant
     Dosage: 1 MILLIGRAM, TWO TIMES A DAY, 1 MG, Q12H (1 MG, UNKNOWN FREQ)
     Route: 065
  47. TACROLIMUS [Suspect]
     Active Substance: TACROLIMUS
     Dosage: 0.5 MILLIGRAM, TWO TIMES A DAY, 0.5 MG, Q12H (0.5 MG, TWICE DAILY)
     Route: 065
  48. TACROLIMUS [Suspect]
     Active Substance: TACROLIMUS
     Dosage: UNK
     Route: 065
  49. TAMSULOSIN HYDROCHLORIDE [Suspect]
     Active Substance: TAMSULOSIN HYDROCHLORIDE
     Indication: Prostate infection
     Dosage: 0.4 MILLIGRAM, ONCE A DAY
     Route: 065
  50. TORSEMIDE [Suspect]
     Active Substance: TORSEMIDE
     Indication: Product used for unknown indication
     Dosage: 0.5 DOSAGE FORM, ONCE A DAY
     Route: 065
  51. VALCYTE [Suspect]
     Active Substance: VALGANCICLOVIR HYDROCHLORIDE
     Indication: Product used for unknown indication
     Dosage: 450 MILLIGRAM, ONCE A DAY
     Route: 065
     Dates: start: 20140801

REACTIONS (68)
  - Renal cyst haemorrhage [Not Recovered/Not Resolved]
  - Diverticulum intestinal [Unknown]
  - Haemoglobin decreased [Recovered/Resolved]
  - Intraductal papillary mucinous neoplasm [Unknown]
  - Activated partial thromboplastin time prolonged [Unknown]
  - Blood pressure fluctuation [Not Recovered/Not Resolved]
  - Swelling [Unknown]
  - Renal artery stenosis [Unknown]
  - Carotid arteriosclerosis [Unknown]
  - Atrial fibrillation [Not Recovered/Not Resolved]
  - Renal cyst [Unknown]
  - Left ventricular hypertrophy [Unknown]
  - Spinal stenosis [Unknown]
  - Hepatic steatosis [Unknown]
  - Basal cell carcinoma [Recovered/Resolved]
  - Vena cava injury [Unknown]
  - Actinic keratosis [Unknown]
  - Delayed graft function [Unknown]
  - Thrombosis [Unknown]
  - Metabolic acidosis [Unknown]
  - Chronic kidney disease [Unknown]
  - Bradycardia [Unknown]
  - Vertigo [Unknown]
  - Atrioventricular block [Unknown]
  - Presyncope [Unknown]
  - Dizziness [Unknown]
  - Benign prostatic hyperplasia [Unknown]
  - Rectal prolapse [Unknown]
  - Blood potassium increased [Unknown]
  - Red blood cell count decreased [Recovered/Resolved]
  - C-reactive protein increased [Unknown]
  - Hepatosplenomegaly [Unknown]
  - Gastrooesophageal reflux disease [Unknown]
  - SARS-CoV-2 antibody test positive [Unknown]
  - Hyperparathyroidism [Unknown]
  - Glycosylated haemoglobin increased [Unknown]
  - Vitamin D decreased [Recovered/Resolved]
  - Myalgia [Unknown]
  - Squamous cell carcinoma of skin [Recovered/Resolved]
  - Spinal osteoarthritis [Unknown]
  - Restless legs syndrome [Unknown]
  - Mean cell volume increased [Recovered/Resolved]
  - Haemorrhoids [Unknown]
  - Overdose [Unknown]
  - Aortic valve incompetence [Unknown]
  - Arteriosclerosis [Unknown]
  - Pulmonary hypertension [Unknown]
  - Aortic dilatation [Unknown]
  - Haemorrhage [Unknown]
  - Hypertension [Unknown]
  - Aortic arteriosclerosis [Unknown]
  - COVID-19 [Unknown]
  - Fear [Unknown]
  - Large intestine polyp [Unknown]
  - Insomnia [Unknown]
  - Headache [Unknown]
  - Swelling of eyelid [Unknown]
  - Swelling face [Unknown]
  - Restlessness [Unknown]
  - Oedema peripheral [Unknown]
  - Incorrect dose administered [Unknown]
  - Drug ineffective [Unknown]
  - Intervertebral disc space narrowing [Unknown]
  - Perineal cyst [Unknown]
  - Restlessness [Unknown]
  - Vascular compression [Unknown]
  - Vascular anastomotic haemorrhage [Unknown]
  - Complications of transplanted kidney [Unknown]

NARRATIVE: CASE EVENT DATE: 20130401
